FAERS Safety Report 18589626 (Version 1)
Quarter: 2020Q4

REPORT INFORMATION
  Report Type: Spontaneous
  Country: US (occurrence: US)
  Receive Date: 20201204
  Receipt Date: 20201204
  Transmission Date: 20210114
  Serious: Yes (Death)
  Sender: FDA-Public Use
  Company Number: None

PATIENT
  Age: 59 Year
  Sex: Female

DRUGS (13)
  1. AMLODIPINE [Concomitant]
     Active Substance: AMLODIPINE BESYLATE
  2. DICLOFENAC GEL [Concomitant]
     Active Substance: DICLOFENAC
  3. ACYCLOVIR. [Concomitant]
     Active Substance: ACYCLOVIR
  4. ESOMPERA MAG [Concomitant]
  5. MONTELUKAST [Concomitant]
     Active Substance: MONTELUKAST SODIUM
  6. LISINOPRIL. [Concomitant]
     Active Substance: LISINOPRIL
  7. PREGABALIN. [Concomitant]
     Active Substance: PREGABALIN
  8. DIPHEN/ATROP [Concomitant]
     Active Substance: ATROPINE SULFATE\DIPHENOXYLATE
  9. FUROSEMIDE. [Concomitant]
     Active Substance: FUROSEMIDE
  10. FARYDAK [Suspect]
     Active Substance: PANOBINOSTAT
     Indication: NEOPLASM MALIGNANT
     Dosage: ?          OTHER FREQUENCY:M - W - F;OTHER ROUTE:PO-2WK ON - 1WK OFF?
     Dates: start: 20200728, end: 20201125
  11. ELIQUIS [Concomitant]
     Active Substance: APIXABAN
  12. DIAZEPAM. [Concomitant]
     Active Substance: DIAZEPAM
  13. EZETIMBE [Concomitant]
     Active Substance: EZETIMIBE

REACTIONS (1)
  - Death [None]

NARRATIVE: CASE EVENT DATE: 20201125
